FAERS Safety Report 14405640 (Version 1)
Quarter: 2018Q1

REPORT INFORMATION
  Report Type: Spontaneous
  Country: US (occurrence: IT)
  Receive Date: 20180118
  Receipt Date: 20180118
  Transmission Date: 20180509
  Serious: Yes (Other)
  Sender: FDA-Public Use
  Company Number: US-AUROBINDO-AUR-APL-2018-002344

PATIENT
  Age: 76 Year
  Sex: Female

DRUGS (2)
  1. LOVENOX [Suspect]
     Active Substance: ENOXAPARIN SODIUM
     Indication: GENERAL ANAESTHESIA
     Dosage: 30 MG, TWO TIMES A DAY
     Route: 065
  2. BUPIVACAINE SOLUTION FOR INJECTION [Suspect]
     Active Substance: BUPIVACAINE
     Indication: SPINAL ANAESTHESIA
     Dosage: 12 MG, UNK
     Route: 065

REACTIONS (8)
  - Urinary incontinence [Unknown]
  - Fall [Unknown]
  - Anal incontinence [Unknown]
  - Paraplegia [Unknown]
  - Neurogenic bladder [Unknown]
  - Back pain [Unknown]
  - Gait inability [Unknown]
  - Haematoma [Unknown]
